FAERS Safety Report 7985346-2 (Version None)
Quarter: 2011Q4

REPORT INFORMATION
  Report Type: 
  Country: None (occurrence: None)
  Receive Date: 20111216
  Receipt Date: 20110916
  Transmission Date: 20120403
  Serious: No
  Sender: FDA-Public Use
  Company Number: US-ABBOTT-11P-163-0856092-00

PATIENT
  Sex: Female
  Weight: 54.48 kg

DRUGS (9)
  1. FENTANYL [Concomitant]
     Indication: PAIN
  2. ZOMIG [Concomitant]
     Indication: PRODUCT USED FOR UNKNOWN INDICATION
  3. TRILIPIX [Suspect]
     Indication: BLOOD CHOLESTEROL INCREASED
     Dates: start: 20110718
  4. GABAPENTIN [Concomitant]
     Indication: PAIN
  5. TRAMADOL HCL [Concomitant]
     Indication: PAIN
  6. LORAZEPAM [Concomitant]
     Indication: PAIN
  7. DILAUDID [Concomitant]
     Indication: PAIN
  8. PANCRELIPASE [Suspect]
     Indication: PANCREATIC INSUFFICIENCY
     Dates: start: 20110701
  9. OMEPRAZOLE [Concomitant]
     Indication: PRODUCT USED FOR UNKNOWN INDICATION

REACTIONS (3)
  - ABDOMINAL DISCOMFORT [None]
  - NAUSEA [None]
  - DIZZINESS [None]
